FAERS Safety Report 8881885 (Version 2)
Quarter: 2012Q4

REPORT INFORMATION
  Report Type: 
  Country: CH (occurrence: CH)
  Receive Date: 20121102
  Receipt Date: 20121217
  Transmission Date: 20130627
  Serious: Yes (Hospitalization)
  Sender: FDA-Public Use
  Company Number: CH-BRISTOL-MYERS SQUIBB COMPANY-17057399

PATIENT
  Age: 56 Year
  Sex: Female

DRUGS (9)
  1. TAXOL [Suspect]
     Indication: OVARIAN CANCER
     Route: 041
     Dates: start: 20120909, end: 20121015
  2. CARBOPLATIN [Suspect]
     Indication: OVARIAN CANCER
     Dosage: AUC:5; Inf.
     Dates: start: 20120909, end: 20121015
  3. DEXAMETHASONE [Concomitant]
  4. ONDANSETRON [Concomitant]
  5. ZANTIC [Concomitant]
  6. TAVEGYL [Concomitant]
  7. LANTUS [Concomitant]
  8. NOVORAPID [Concomitant]
  9. DAFALGAN [Concomitant]

REACTIONS (3)
  - Rhabdomyolysis [Not Recovered/Not Resolved]
  - Peripheral motor neuropathy [Not Recovered/Not Resolved]
  - Oedema peripheral [Not Recovered/Not Resolved]
